FAERS Safety Report 21064262 (Version 3)
Quarter: 2022Q3

REPORT INFORMATION
  Report Type: Spontaneous
  Country: US (occurrence: US)
  Receive Date: 20220711
  Receipt Date: 20220920
  Transmission Date: 20221027
  Serious: No
  Sender: FDA-Public Use
  Company Number: US-PFIZER INC-202200878703

PATIENT
  Age: 14 Year
  Sex: Female
  Weight: 44 kg

DRUGS (4)
  1. GENOTROPIN [Suspect]
     Active Substance: SOMATROPIN
     Indication: Blood growth hormone abnormal
     Dosage: 3 MG, DAILY
  2. GENOTROPIN [Suspect]
     Active Substance: SOMATROPIN
     Dosage: 3 MG, DAILY
  3. GENOTROPIN [Suspect]
     Active Substance: SOMATROPIN
     Dosage: UNK
  4. LEVOTHYROXINE [Concomitant]
     Active Substance: LEVOTHYROXINE
     Indication: Thyroid disorder
     Dosage: 0.5 DF, DAILY (EVERY DAY, HALF OF 0.125 MG)

REACTIONS (2)
  - Device delivery system issue [Unknown]
  - Drug dose omission by device [Unknown]

NARRATIVE: CASE EVENT DATE: 20220601
